FAERS Safety Report 24374390 (Version 2)
Quarter: 2024Q4

REPORT INFORMATION
  Report Type: Spontaneous
  Country: US (occurrence: US)
  Receive Date: 20240927
  Receipt Date: 20241003
  Transmission Date: 20250114
  Serious: Yes (Hospitalization)
  Sender: PFIZER
  Company Number: US-PFIZER INC-202400265207

PATIENT
  Age: 66 Year
  Sex: Female
  Weight: 115.19 kg

DRUGS (1)
  1. IBRANCE [Suspect]
     Active Substance: PALBOCICLIB
     Indication: Breast cancer
     Dosage: 125 MG DAILY ON DAYS 1 TO 21 EVERY 28 DAYS
     Route: 048
     Dates: start: 20230510, end: 20240905

REACTIONS (2)
  - Pneumonia [Recovered/Resolved]
  - Stomatitis [Recovered/Resolved]

NARRATIVE: CASE EVENT DATE: 20240905
